FAERS Safety Report 9423435 (Version 1)
Quarter: 2013Q3

REPORT INFORMATION
  Report Type: Spontaneous
  Country: US (occurrence: US)
  Receive Date: 20130726
  Receipt Date: 20130726
  Transmission Date: 20140515
  Serious: No
  Sender: FDA-Public Use
  Company Number: US-GALDERMA-US-GDP-12415366

PATIENT
  Sex: Female

DRUGS (1)
  1. DIFFERIN (ADAPALENE) GEL, 0.3% [Suspect]
     Route: 061

REACTIONS (1)
  - Skin irritation [Recovered/Resolved]
